FAERS Safety Report 12527959 (Version 1)
Quarter: 2016Q3

REPORT INFORMATION
  Report Type: Spontaneous
  Country: NL (occurrence: NL)
  Receive Date: 20160705
  Receipt Date: 20160705
  Transmission Date: 20161109
  Serious: Yes (Hospitalization, Other)
  Sender: FDA-Public Use
  Company Number: NL-TEVA-673908ISR

PATIENT
  Age: 63 Year
  Sex: Female

DRUGS (15)
  1. MORPHINE [Suspect]
     Active Substance: MORPHINE
     Indication: AMPUTATION STUMP PAIN
     Dosage: WEAN FROM THE DRUG WITH STEPS OF 0.5MG/DAY
     Route: 037
  2. AMITRIPTYLINE [Suspect]
     Active Substance: AMITRIPTYLINE
     Indication: AMPUTATION STUMP PAIN
     Dosage: 25 MILLIGRAM DAILY;
  3. PROPOFOL. [Concomitant]
     Active Substance: PROPOFOL
     Indication: GENERAL ANAESTHESIA
  4. DIAZEPAM. [Suspect]
     Active Substance: DIAZEPAM
     Indication: MUSCLE SPASMS
     Dosage: 15 MILLIGRAM DAILY;
     Route: 048
  5. DUROGESIC [Suspect]
     Active Substance: FENTANYL
     Indication: PAIN
     Dosage: 100 MICROGRAM/HOUR
     Route: 062
  6. SUFENTANIL [Concomitant]
     Active Substance: SUFENTANIL
     Indication: GENERAL ANAESTHESIA
  7. ROCURONIUM [Concomitant]
     Active Substance: ROCURONIUM BROMIDE
     Indication: GENERAL ANAESTHESIA
  8. CLINDAMYCIN [Suspect]
     Active Substance: CLINDAMYCIN\CLINDAMYCIN PHOSPHATE
     Dosage: 1200 MILLIGRAM DAILY;
  9. AMITRIPTYLINE [Suspect]
     Active Substance: AMITRIPTYLINE
     Indication: AMPUTATION STUMP PAIN
     Dosage: 10 MILLIGRAM DAILY;
  10. OXYCONTIN [Suspect]
     Active Substance: OXYCODONE HYDROCHLORIDE
     Indication: PAIN
     Dosage: 80 MILLIGRAM DAILY;
     Route: 048
  11. CLONIDINE. [Suspect]
     Active Substance: CLONIDINE
     Indication: PAIN
     Dosage: .45 MILLIGRAM DAILY;
     Route: 048
  12. AMOXICILLIN W/CLAVULANIC ACID [Suspect]
     Active Substance: AMOXICILLIN\CLAVULANIC ACID
     Dosage: 4 DOSAGE FORMS DAILY;
  13. AMOXICILLIN W/CLAVULANIC ACID [Suspect]
     Active Substance: AMOXICILLIN\CLAVULANIC ACID
     Route: 042
  14. MORPHINE [Suspect]
     Active Substance: MORPHINE
     Indication: AMPUTATION STUMP PAIN
     Dosage: 3.5 MILLIGRAM DAILY;
     Route: 037
  15. SEVOFLURANE. [Concomitant]
     Active Substance: SEVOFLURANE
     Indication: GENERAL ANAESTHESIA

REACTIONS (3)
  - Drug withdrawal syndrome [Recovering/Resolving]
  - Hemiparesis [Recovering/Resolving]
  - Posterior reversible encephalopathy syndrome [Recovering/Resolving]
